FAERS Safety Report 10013993 (Version 1)
Quarter: 2014Q1

REPORT INFORMATION
  Report Type: Spontaneous
  Country: GB (occurrence: GB)
  Receive Date: 20140317
  Receipt Date: 20140317
  Transmission Date: 20141002
  Serious: Yes (Hospitalization)
  Sender: FDA-Public Use
  Company Number: GB-JNJFOC-20140303994

PATIENT
  Age: 67 Year
  Sex: Female

DRUGS (7)
  1. XEPLION [Suspect]
     Indication: PRODUCT USED FOR UNKNOWN INDICATION
     Route: 030
  2. XEPLION [Suspect]
     Indication: PRODUCT USED FOR UNKNOWN INDICATION
     Route: 030
  3. XEPLION [Suspect]
     Indication: PRODUCT USED FOR UNKNOWN INDICATION
     Route: 030
  4. ARIPIPRAZOLE [Concomitant]
     Route: 065
  5. FUROSEMIDE [Concomitant]
     Route: 065
  6. ORPHENADRINE [Concomitant]
     Route: 065
  7. HYOSCINE [Concomitant]
     Route: 065

REACTIONS (2)
  - Fall [Unknown]
  - Abnormal behaviour [Unknown]
